FAERS Safety Report 21240021 (Version 1)
Quarter: 2022Q3

REPORT INFORMATION
  Report Type: Spontaneous
  Country: US (occurrence: None)
  Receive Date: 20220821
  Receipt Date: 20220821
  Transmission Date: 20221026
  Serious: Yes (Death)
  Sender: FDA-Public Use
  Company Number: None

PATIENT
  Age: 31 Year
  Sex: Male
  Weight: 67.5 kg

DRUGS (1)
  1. DEXTROSE\SODIUM BICARBONATE [Suspect]
     Active Substance: DEXTROSE\SODIUM BICARBONATE
     Indication: Metabolic acidosis
     Route: 042

REACTIONS (1)
  - Death [None]

NARRATIVE: CASE EVENT DATE: 20210824
